FAERS Safety Report 10677692 (Version 31)
Quarter: 2019Q2

REPORT INFORMATION
  Report Type: Report from Study
  Country: CA (occurrence: CA)
  Receive Date: 20141229
  Receipt Date: 20190518
  Transmission Date: 20190711
  Serious: Yes (Hospitalization, Other)
  Sender: FDA-Public Use
  Company Number: CA-ROCHE-1458372

PATIENT
  Age: 52 Year
  Sex: Male
  Weight: 123 kg

DRUGS (8)
  1. ACTEMRA [Suspect]
     Active Substance: TOCILIZUMAB
     Indication: RHEUMATOID ARTHRITIS
     Route: 042
     Dates: start: 20131128
  2. CITALOPRAM [Concomitant]
     Active Substance: CITALOPRAM HYDROBROMIDE
  3. HYDROXYCHLOROQUINE [Concomitant]
     Active Substance: HYDROXYCHLOROQUINE
  4. OLMETEC PLUS [Concomitant]
     Active Substance: HYDROCHLOROTHIAZIDE\OLMESARTAN MEDOXOMIL
  5. FOLIC ACID. [Concomitant]
     Active Substance: FOLIC ACID
  6. CELEBREX [Concomitant]
     Active Substance: CELECOXIB
  7. CEPHALEXIN [CEFALEXIN] [Concomitant]
     Active Substance: CEPHALEXIN
     Route: 065
  8. METHOTREXATE. [Concomitant]
     Active Substance: METHOTREXATE

REACTIONS (40)
  - Pain [Unknown]
  - Peroneal nerve palsy [Unknown]
  - Postoperative wound infection [Recovering/Resolving]
  - Abdominal pain [Not Recovered/Not Resolved]
  - Respiratory rate increased [Unknown]
  - Post procedural swelling [Unknown]
  - Nasopharyngitis [Unknown]
  - Blood pressure systolic increased [Unknown]
  - Arthralgia [Unknown]
  - Poor venous access [Unknown]
  - Nasal congestion [Recovering/Resolving]
  - Impaired healing [Not Recovered/Not Resolved]
  - Peripheral swelling [Not Recovered/Not Resolved]
  - Limb mass [Not Recovered/Not Resolved]
  - Arthritis infective [Recovering/Resolving]
  - Nausea [Unknown]
  - Thrombosis [Unknown]
  - Musculoskeletal pain [Unknown]
  - Neuropathy peripheral [Unknown]
  - Pneumonia [Unknown]
  - Infusion related reaction [Unknown]
  - Cough [Recovering/Resolving]
  - Ulcer [Unknown]
  - Post procedural bile leak [Recovered/Resolved]
  - Abdominal hernia [Unknown]
  - Wheezing [Recovering/Resolving]
  - Heart rate increased [Unknown]
  - Nervous system disorder [Unknown]
  - Gait disturbance [Unknown]
  - Pain in extremity [Not Recovered/Not Resolved]
  - Gallbladder disorder [Unknown]
  - Hernia [Not Recovered/Not Resolved]
  - Blood pressure increased [Unknown]
  - Limb injury [Not Recovered/Not Resolved]
  - Blister [Not Recovered/Not Resolved]
  - Limb injury [Recovered/Resolved]
  - Localised infection [Unknown]
  - Back pain [Unknown]
  - Balance disorder [Not Recovered/Not Resolved]
  - Skin ulcer [Unknown]

NARRATIVE: CASE EVENT DATE: 20140903
